FAERS Safety Report 16821976 (Version 2)
Quarter: 2019Q4

REPORT INFORMATION
  Report Type: Spontaneous
  Country: DE (occurrence: DE)
  Receive Date: 20190918
  Receipt Date: 20191028
  Transmission Date: 20200122
  Serious: Yes (Other)
  Sender: FDA-Public Use
  Company Number: DE-AMGEN-DEUSP2019151263

PATIENT

DRUGS (10)
  1. CINACALCET HCL [Suspect]
     Active Substance: CINACALCET HYDROCHLORIDE
     Dosage: 120 MILLIGRAM, QD
     Route: 065
  2. CINACALCET HCL [Suspect]
     Active Substance: CINACALCET HYDROCHLORIDE
     Dosage: 180 MILLIGRAM, QD
     Route: 065
  3. SEVELAMER [Concomitant]
     Active Substance: SEVELAMER
  4. CINACALCET HCL [Suspect]
     Active Substance: CINACALCET HYDROCHLORIDE
     Indication: HYPERPARATHYROIDISM SECONDARY
     Dosage: 30 MILLIGRAM, QD
     Route: 065
  5. CALCIUM [Concomitant]
     Active Substance: CALCIUM
  6. VITAMINE D [Concomitant]
     Active Substance: CHOLECALCIFEROL
  7. CINACALCET HCL [Suspect]
     Active Substance: CINACALCET HYDROCHLORIDE
     Dosage: 90 MILLIGRAM, QD
     Route: 065
  8. MAGNESIUM [Concomitant]
     Active Substance: MAGNESIUM
  9. LANTHANUM CARBONATE. [Concomitant]
     Active Substance: LANTHANUM CARBONATE
  10. CINACALCET HCL [Suspect]
     Active Substance: CINACALCET HYDROCHLORIDE
     Dosage: 60 MILLIGRAM, QD
     Route: 065

REACTIONS (3)
  - Therapy non-responder [Unknown]
  - Renal failure [Unknown]
  - Hypocalcaemia [Unknown]
